FAERS Safety Report 6858187-7 (Version None)
Quarter: 2010Q3

REPORT INFORMATION
  Report Type: 
  Country: None (occurrence: None)
  Receive Date: 20100719
  Receipt Date: 20080130
  Transmission Date: 20110219
  Serious: No
  Sender: FDA-Public Use
  Company Number: US-PFIZER INC-2008011838

PATIENT

DRUGS (1)
  1. CHANTIX [Suspect]
     Dates: start: 20071001

REACTIONS (5)
  - AGEUSIA [None]
  - ANOSMIA [None]
  - CONSTIPATION [None]
  - HYPOAESTHESIA ORAL [None]
  - LIP BLISTER [None]
